FAERS Safety Report 9168492 (Version 5)
Quarter: 2013Q2

REPORT INFORMATION
  Report Type: Report from Study
  Country: US (occurrence: US)
  Receive Date: 20130318
  Receipt Date: 20130507
  Transmission Date: 20140414
  Serious: Yes (Death, Hospitalization)
  Sender: FDA-Public Use
  Company Number: US-ACTELION-A-NJ2013-80548

PATIENT
  Age: 75 Year
  Sex: Male

DRUGS (6)
  1. VELETRI [Suspect]
     Indication: PULMONARY ARTERIAL HYPERTENSION
     Dosage: 8 NG/KG, PER MIN
     Route: 041
     Dates: start: 20120529, end: 20130426
  2. TRACLEER [Suspect]
     Indication: PULMONARY ARTERIAL HYPERTENSION
     Dosage: 125 MG, BID
     Route: 048
     Dates: start: 20120630, end: 20130426
  3. TRACLEER [Suspect]
     Dosage: 62.5 MG, BID
     Route: 048
     Dates: start: 20120529, end: 20120629
  4. VENTAVIS [Suspect]
     Indication: PULMONARY ARTERIAL HYPERTENSION
     Dosage: 5 MCG 6XDAY
     Route: 055
  5. ADCIRCA [Concomitant]
  6. PRADAXA [Concomitant]

REACTIONS (8)
  - Pneumonia [Fatal]
  - Cardiac pacemaker insertion [Unknown]
  - Fall [Unknown]
  - Limb injury [Unknown]
  - Blood glucose decreased [Unknown]
  - Fatigue [Unknown]
  - Dyspnoea [Unknown]
  - Pain in jaw [Recovering/Resolving]
